FAERS Safety Report 14595382 (Version 1)
Quarter: 2018Q1

REPORT INFORMATION
  Report Type: Other
  Country: DE (occurrence: DE)
  Receive Date: 20180302
  Receipt Date: 20180302
  Transmission Date: 20180509
  Serious: Yes (Other)
  Sender: FDA-Public Use
  Company Number: DE-MACLEODS PHARMACEUTICALS US LTD-MAC2018010654

PATIENT

DRUGS (1)
  1. SILDENAFIL. [Suspect]
     Active Substance: SILDENAFIL
     Indication: PROSTATECTOMY
     Dosage: 50 MG, UNK
     Route: 065

REACTIONS (6)
  - Abdominal discomfort [Unknown]
  - Flushing [Recovered/Resolved]
  - Lenticular opacities [Not Recovered/Not Resolved]
  - Erythema [Recovered/Resolved]
  - Visual impairment [Not Recovered/Not Resolved]
  - Photopsia [Recovered/Resolved]
